FAERS Safety Report 5082261-1 (Version None)
Quarter: 2006Q3

REPORT INFORMATION
  Report Type: 
  Country: None (occurrence: None)
  Receive Date: 20060816
  Receipt Date: 20060816
  Transmission Date: 20061208
  Serious: Yes (Other)
  Sender: FDA-Public Use
  Company Number: None

PATIENT
  Age: 50 Year
  Sex: Female

DRUGS (2)
  1. LEVOXYL [Suspect]
     Dosage: TABLET
  2. LEVOXYL [Suspect]
     Dosage: TABLET

REACTIONS (6)
  - ASTHENIA [None]
  - BLOOD THYROID STIMULATING HORMONE DECREASED [None]
  - DRUG DISPENSING ERROR [None]
  - HEADACHE [None]
  - INCORRECT DOSE ADMINISTERED [None]
  - MYALGIA [None]
